FAERS Safety Report 17189044 (Version 1)
Quarter: 2019Q4

REPORT INFORMATION
  Report Type: Spontaneous
  Country: GB (occurrence: GB)
  Receive Date: 20191223
  Receipt Date: 20191223
  Transmission Date: 20200122
  Serious: Yes (Other)
  Sender: FDA-Public Use
  Company Number: GB-B.I. PHARMACEUTICALS,INC./RIDGEFIELD-2019-12-120450

PATIENT
  Age: 68 Year
  Sex: Female
  Weight: 87 kg

DRUGS (23)
  1. BIOTENE DRY MOUTH [GLUCOSE OXIDASE;LACTOFERRIN;LACTOPEROXIDASE;LYSOZYM [Concomitant]
     Active Substance: DEVICE\GLUCOSE OXIDASE\LACTOFERRIN\LACTOPEROXIDASE BOVINE\LYSOZYME HYDROCHLORIDE
     Indication: DRY MOUTH
     Dosage: USE AS NEEDED FOR DRY MOUTH
     Route: 065
     Dates: start: 20181019
  2. OMEPRAZOLE. [Concomitant]
     Active Substance: OMEPRAZOLE
     Indication: PROPHYLAXIS
     Dosage: TO PROTECT STOMACH
     Route: 065
     Dates: start: 20160226
  3. SUKKARTO [Concomitant]
     Active Substance: METFORMIN HYDROCHLORIDE
     Indication: PRODUCT USED FOR UNKNOWN INDICATION
     Route: 065
     Dates: start: 20180116
  4. LEVOTHYROXINE. [Concomitant]
     Active Substance: LEVOTHYROXINE
     Indication: PRODUCT USED FOR UNKNOWN INDICATION
     Dosage: EACH MORNING
     Route: 065
     Dates: start: 20120301
  5. AMITRIPTYLINE HYDROCHLORIDE. [Concomitant]
     Active Substance: AMITRIPTYLINE HYDROCHLORIDE
     Indication: PAIN
     Dosage: AT NIGHT
     Route: 065
     Dates: start: 20170504
  6. DOUBLEBASE [Concomitant]
     Active Substance: ISOPROPYL MYRISTATE\PARAFFIN
     Indication: PRODUCT USED FOR UNKNOWN INDICATION
     Dosage: USE AS NEEDED
     Route: 065
     Dates: start: 20160226
  7. GAVISCON ADVANCE [POTASSIUM BICARBONATE;SODIUM ALGINATE] [Concomitant]
     Indication: PRODUCT USED FOR UNKNOWN INDICATION
     Dosage: 5ML OR 10ML 4 TIMES/DAY
     Route: 065
     Dates: start: 20160226
  8. NITROFURANTOIN. [Concomitant]
     Active Substance: NITROFURANTOIN
     Indication: URINARY TRACT INFECTION
     Route: 065
     Dates: start: 20191115, end: 20191118
  9. IBUPROFEN. [Concomitant]
     Active Substance: IBUPROFEN
     Indication: ARTHRALGIA
     Dosage: , STOP IF ...
     Route: 065
     Dates: start: 20171121, end: 20191112
  10. AMLODIPINE [Concomitant]
     Active Substance: AMLODIPINE BESYLATE
     Indication: HYPERTENSION
     Route: 065
     Dates: start: 20150113
  11. LORAZEPAM. [Concomitant]
     Active Substance: LORAZEPAM
     Indication: ANXIETY
     Dosage: TAKE HALF OR ONE AS NEEDED FOR ANXIETY- NOT MORE THAN ONCE DAILY AND NOT EVERY DAY
     Route: 065
     Dates: start: 20191022, end: 20191119
  12. GLIMEPIRIDE. [Concomitant]
     Active Substance: GLIMEPIRIDE
     Indication: DIABETES MELLITUS
     Route: 065
     Dates: start: 20160222
  13. ZOPICLONE [Concomitant]
     Active Substance: ZOPICLONE
     Indication: SLEEP DISORDER
     Dosage: AT NIGHT -NOT ON A REGULAR BASIS; AS REQUIRED
     Route: 065
     Dates: start: 20191022, end: 20191119
  14. ATORVASTATIN [Concomitant]
     Active Substance: ATORVASTATIN
     Indication: BLOOD CHOLESTEROL INCREASED
     Dosage: AT NIGHT
     Route: 065
     Dates: start: 20160226
  15. VOLTAROL [Concomitant]
     Active Substance: DICLOFENAC SODIUM
     Indication: MYALGIA
     Dosage: APPLY
     Route: 065
     Dates: start: 20160226
  16. DULAGLUTIDE. [Concomitant]
     Active Substance: DULAGLUTIDE
     Indication: PRODUCT USED FOR UNKNOWN INDICATION
     Dosage: USE AS DIRECTED
     Route: 065
     Dates: start: 20190314, end: 20191112
  17. ADCAL [CALCIUM CARBONATE] [Concomitant]
     Indication: PRODUCT USED FOR UNKNOWN INDICATION
     Dosage: TAKE 2 AT TEATIME FOR BONES
     Route: 065
     Dates: start: 20171013
  18. COCODAMOL [Concomitant]
     Active Substance: ACETAMINOPHEN\CODEINE PHOSPHATE
     Indication: PAIN
     Dosage: TAKE 1 OR 2 UP 4 TIMES/DAY AS NEEDED
     Route: 065
     Dates: start: 20171204
  19. RAMIPRIL. [Concomitant]
     Active Substance: RAMIPRIL
     Indication: PRODUCT USED FOR UNKNOWN INDICATION
     Route: 065
     Dates: start: 20160226
  20. JARDIANCE [Suspect]
     Active Substance: EMPAGLIFLOZIN
     Indication: PRODUCT USED FOR UNKNOWN INDICATION
     Route: 065
     Dates: start: 20191118
  21. LACTULOSE. [Concomitant]
     Active Substance: LACTULOSE
     Indication: PRODUCT USED FOR UNKNOWN INDICATION
     Dosage: AS REQUIRED
     Route: 065
     Dates: start: 20170711, end: 20191112
  22. PREGABALIN. [Concomitant]
     Active Substance: PREGABALIN
     Indication: PAIN IN EXTREMITY
     Route: 065
     Dates: start: 20190311
  23. ANASTROZOLE. [Concomitant]
     Active Substance: ANASTROZOLE
     Indication: PRODUCT USED FOR UNKNOWN INDICATION
     Dosage: AS DIRECTED BY ONCOLOGIST
     Route: 065
     Dates: start: 20160527

REACTIONS (3)
  - Malaise [Recovered/Resolved]
  - Thirst [Unknown]
  - Blood glucose increased [Recovered/Resolved]

NARRATIVE: CASE EVENT DATE: 20191202
